FAERS Safety Report 10171400 (Version 1)
Quarter: 2014Q2

REPORT INFORMATION
  Report Type: Spontaneous
  Country: US (occurrence: None)
  Receive Date: 20140513
  Receipt Date: 20140513
  Transmission Date: 20141212
  Serious: Yes (Hospitalization)
  Sender: FDA-Public Use
  Company Number: None

PATIENT
  Age: 70 Year
  Sex: Male

DRUGS (5)
  1. HEPARIN [Suspect]
     Indication: PROPHYLAXIS
     Dosage: VARIABLE, ONCE, IV
     Route: 042
     Dates: start: 20140122, end: 20140122
  2. CEFTRIAXONE [Concomitant]
  3. LANSOPRAZOLE [Concomitant]
  4. TAMSULOSIN [Concomitant]
  5. VANCOMYCIN [Concomitant]

REACTIONS (1)
  - Thrombocytopenia [None]
